FAERS Safety Report 21805188 (Version 1)
Quarter: 2023Q1

REPORT INFORMATION
  Report Type: Report from Study
  Country: IT (occurrence: IT)
  Receive Date: 20230102
  Receipt Date: 20230102
  Transmission Date: 20230418
  Serious: Yes (Other)
  Sender: FDA-Public Use
  Company Number: IT-AUROBINDO-AUR-APL-2022-056107

PATIENT
  Age: 14 Year
  Sex: Female

DRUGS (1)
  1. AMOXICILLIN [Suspect]
     Active Substance: AMOXICILLIN
     Indication: Drug provocation test
     Dosage: 12.5 MILLIGRAM/KILOGRAM, HALF A CUMULATIVE DOSE
     Route: 065

REACTIONS (1)
  - Enterocolitis [Recovering/Resolving]
